FAERS Safety Report 8436093 (Version 6)
Quarter: 2013Q1

REPORT INFORMATION
  Report Type: Spontaneous
  Country: US (occurrence: US)
  Receive Date: 20120301
  Receipt Date: 20130312
  Transmission Date: 20140127
  Serious: No
  Sender: FDA-Public Use
  Company Number: US-PFIZER INC-2012052493

PATIENT
  Age: 69 Year
  Sex: Female

DRUGS (11)
  1. LYRICA [Suspect]
     Indication: FIBROMYALGIA
     Dosage: 150 MG, 1X/DAY
     Dates: start: 2011
  2. LYRICA [Suspect]
     Indication: MUSCULOSKELETAL PAIN
     Dosage: UNK
     Dates: start: 20120821
  3. LYRICA [Suspect]
     Indication: ARTHRALGIA
     Dosage: 150 MG, (75 MG, 2 TABS QHS)
     Route: 048
  4. LYRICA [Suspect]
     Indication: PAIN
  5. LYRICA [Suspect]
     Indication: PAIN IN EXTREMITY
  6. CELEBREX [Concomitant]
     Indication: RHEUMATOID ARTHRITIS
     Dosage: UNK
     Dates: start: 2011
  7. CELEBREX [Concomitant]
     Indication: PAIN
     Dosage: UNK
     Dates: start: 20120821
  8. CELEBREX [Concomitant]
     Dosage: 200 MG, 1X/DAY (1 CAPSULE QD)
     Route: 048
  9. LEVOXYL [Concomitant]
     Indication: THYROID DISORDER
     Dosage: UNK
     Dates: start: 20120821
  10. PLAQUENIL [Concomitant]
     Dosage: UNK
  11. SULFASALAZINE [Concomitant]
     Dosage: UNK

REACTIONS (4)
  - Pain [Unknown]
  - Musculoskeletal discomfort [Unknown]
  - Drug ineffective [Unknown]
  - Pain in extremity [Unknown]
